FAERS Safety Report 23754471 (Version 3)
Quarter: 2024Q2

REPORT INFORMATION
  Report Type: Spontaneous
  Country: US (occurrence: US)
  Receive Date: 20240418
  Receipt Date: 20240618
  Transmission Date: 20240716
  Serious: No
  Sender: FDA-Public Use
  Company Number: US-Blueprint Medicines Corporation-3180

PATIENT
  Sex: Male

DRUGS (1)
  1. AYVAKIT [Suspect]
     Active Substance: AVAPRITINIB
     Indication: Haematopoietic neoplasm
     Route: 065
     Dates: start: 20240126

REACTIONS (5)
  - Dry mouth [Unknown]
  - Sinus disorder [Unknown]
  - Blood pressure fluctuation [Unknown]
  - Amnesia [Unknown]
  - Memory impairment [Unknown]
